FAERS Safety Report 5527951-9 (Version None)
Quarter: 2007Q4

REPORT INFORMATION
  Report Type: 
  Country: None (occurrence: None)
  Receive Date: 20071109
  Receipt Date: 20070423
  Transmission Date: 20080405
  Serious: Yes (Hospitalization, Other)
  Sender: FDA-Public Use
  Company Number: PHEH2007US06430

PATIENT
  Age: 60 Year
  Sex: Female
  Weight: 68.9 kg

DRUGS (5)
  1. ESTRADERM [Suspect]
     Indication: MENOPAUSE
     Dosage: 0.05 MG, TRANSDERMAL
     Route: 062
     Dates: start: 19890101, end: 19990101
  2. PREMARIN [Suspect]
     Dates: start: 19860201, end: 19890401
  3. PROVERA [Suspect]
     Indication: MENOPAUSE
     Dates: start: 19860201, end: 19890401
  4. LASIX [Concomitant]
  5. ASPIRIN [Concomitant]

REACTIONS (18)
  - ABDOMINAL PAIN LOWER [None]
  - BLOOD CHOLESTEROL INCREASED [None]
  - CORONARY ARTERY DISEASE [None]
  - DIVERTICULUM INTESTINAL [None]
  - DYSPNOEA EXERTIONAL [None]
  - HAEMANGIOMA OF LIVER [None]
  - HYPERTENSION [None]
  - LEFT VENTRICULAR DYSFUNCTION [None]
  - MYOCARDIAL INFARCTION [None]
  - OSTEOPOROSIS [None]
  - OVARIAN CANCER [None]
  - OVARIAN MASS [None]
  - PAIN IN EXTREMITY [None]
  - PALPITATIONS [None]
  - PELVIC PAIN [None]
  - PROCTITIS ULCERATIVE [None]
  - SALPINGO-OOPHORECTOMY [None]
  - VENTRICULAR HYPOKINESIA [None]
